FAERS Safety Report 5056687-6 (Version None)
Quarter: 2006Q2

REPORT INFORMATION
  Report Type: 
  Country: None (occurrence: None)
  Receive Date: 20060616
  Receipt Date: 20060515
  Transmission Date: 20061013
  Serious: No
  Sender: FDA-Public Use
  Company Number: 2006US000617

PATIENT
  Age: 70 Year
  Sex: Male

DRUGS (1)
  1. VESICARE [Suspect]
     Indication: MICTURITION URGENCY
     Dosage: 5 MG, UID/QD,ORAL
     Route: 048
     Dates: start: 20060313, end: 20060314

REACTIONS (7)
  - BLOOD URINE PRESENT [None]
  - CONSTIPATION [None]
  - DIARRHOEA [None]
  - DYSURIA [None]
  - IMPAIRED GASTRIC EMPTYING [None]
  - NAUSEA [None]
  - RETCHING [None]
